FAERS Safety Report 13114091 (Version 2)
Quarter: 2018Q1

REPORT INFORMATION
  Report Type: Report from Study
  Country: US (occurrence: US)
  Receive Date: 20170113
  Receipt Date: 20180202
  Transmission Date: 20180508
  Serious: Yes (Other)
  Sender: FDA-Public Use
  Company Number: US-PFIZER INC-2017010227

PATIENT

DRUGS (5)
  1. TEMOZOLOMIDE. [Suspect]
     Active Substance: TEMOZOLOMIDE
     Indication: GLIOBLASTOMA MULTIFORME
     Dosage: 75 MG/M2, DAILY  (BETWEEN 2-6 WEEKS POST-CRANIOTOMY)
  2. BEVACIZUMAB. [Suspect]
     Active Substance: BEVACIZUMAB
     Dosage: 10 MG/KG, ON DAYS 1 AND 15
  3. TEMOZOLOMIDE. [Suspect]
     Active Substance: TEMOZOLOMIDE
     Dosage: UNK, CYCLIC  (12 MONTHLY CYCLES OF TEMOZOLOMIDE AT 150- 200 MG/M2/D DAYS 1-5)
  4. BEVACIZUMAB. [Suspect]
     Active Substance: BEVACIZUMAB
     Indication: GLIOBLASTOMA MULTIFORME
     Dosage: 10 MG/KG, EVERY 14 DAYS
  5. TOPOTECAN HYDROCHLORIDE. [Suspect]
     Active Substance: TOPOTECAN HYDROCHLORIDE
     Indication: GLIOBLASTOMA MULTIFORME
     Dosage: CYCLIC, PER DAY, DAYS 2-6
     Route: 048

REACTIONS (1)
  - Pulmonary embolism [Unknown]
